FAERS Safety Report 5908261-4 (Version None)
Quarter: 2008Q4

REPORT INFORMATION
  Report Type: 
  Country: None (occurrence: None)
  Receive Date: 20081006
  Receipt Date: 20080903
  Transmission Date: 20090506
  Serious: No
  Sender: FDA-Public Use
  Company Number: US-BAYER-200829719NA

PATIENT
  Age: 73 Year
  Sex: Male

DRUGS (9)
  1. LEVITRA [Suspect]
     Indication: ERECTILE DYSFUNCTION
     Dosage: TOTAL DAILY DOSE: 10 MG  UNIT DOSE: 10 MG
     Dates: start: 20070101
  2. LISINOPRIL [Concomitant]
     Dosage: TOTAL DAILY DOSE: 40 MG  UNIT DOSE: 20 MG
  3. ASPIRIN [Concomitant]
     Dosage: TOTAL DAILY DOSE: 81 MG  UNIT DOSE: 81 MG
  4. VITAMIN B-12 [Concomitant]
     Dosage: TOTAL DAILY DOSE: 500 MG
  5. OXAZEPAM [Concomitant]
     Dosage: TOTAL DAILY DOSE: 15 MG  UNIT DOSE: 5 MG
  6. HYDROCHLOROTHIAZIDE [Concomitant]
     Dosage: TOTAL DAILY DOSE: 12.5 MG
  7. ATENOLOL [Concomitant]
     Dosage: TOTAL DAILY DOSE: 75 MG
  8. TYLENOL (CAPLET) [Concomitant]
  9. RANITIDINE [Concomitant]

REACTIONS (2)
  - HEARING IMPAIRED [None]
  - HIRSUTISM [None]
